FAERS Safety Report 16873752 (Version 1)
Quarter: 2019Q4

REPORT INFORMATION
  Report Type: Spontaneous
  Country: ES (occurrence: ES)
  Receive Date: 20191001
  Receipt Date: 20191001
  Transmission Date: 20200122
  Serious: Yes (Hospitalization)
  Sender: FDA-Public Use
  Company Number: ES-MYLANLABS-2019M1091271

PATIENT
  Age: 74 Year
  Sex: Male
  Weight: 74 kg

DRUGS (3)
  1. CISPLATINO [Interacting]
     Active Substance: CISPLATIN
     Indication: BLADDER TRANSITIONAL CELL CARCINOMA STAGE III
     Dosage: UNK UNK, CYCLE
     Route: 065
     Dates: start: 20171018, end: 20171103
  2. VINBLASTINA /00115801/ [Interacting]
     Active Substance: VINBLASTINE SULFATE
     Indication: BLADDER TRANSITIONAL CELL CARCINOMA STAGE III
     Dosage: UNK UNK, CYCLE
     Route: 065
     Dates: start: 20171018, end: 20171103
  3. METHOTREXATE. [Suspect]
     Active Substance: METHOTREXATE
     Indication: BLADDER TRANSITIONAL CELL CARCINOMA STAGE III
     Dosage: UNK UNK, CYCLE
     Route: 065
     Dates: start: 20171018, end: 20171103

REACTIONS (4)
  - Neutropenia [Recovered/Resolved]
  - Drug interaction [Unknown]
  - Thrombocytopenia [Recovered/Resolved]
  - Febrile neutropenia [Recovered/Resolved]

NARRATIVE: CASE EVENT DATE: 20171025
